FAERS Safety Report 15755008 (Version 2)
Quarter: 2019Q1

REPORT INFORMATION
  Report Type: Spontaneous
  Country: GB (occurrence: GB)
  Receive Date: 20181224
  Receipt Date: 20190205
  Transmission Date: 20190417
  Serious: Yes (Hospitalization, Other)
  Sender: FDA-Public Use
  Company Number: GB-ACCORD-096879

PATIENT
  Age: 36 Year
  Sex: Male
  Weight: 128 kg

DRUGS (4)
  1. CLOZAPINE. [Suspect]
     Active Substance: CLOZAPINE
     Indication: SCHIZOPHRENIA
     Route: 048
     Dates: start: 2017, end: 201712
  2. PALIPERIDONE. [Concomitant]
     Active Substance: PALIPERIDONE
  3. CLOZAPINE. [Suspect]
     Active Substance: CLOZAPINE
     Indication: SCHIZOPHRENIA
     Route: 048
     Dates: end: 20171218
  4. OLANZAPINE. [Concomitant]
     Active Substance: OLANZAPINE

REACTIONS (8)
  - Headache [Unknown]
  - Myocarditis [Recovering/Resolving]
  - Dizziness [Unknown]
  - Heart rate increased [Unknown]
  - Fatigue [Unknown]
  - Pallor [Unknown]
  - Viral infection [Unknown]
  - Cardiac disorder [Unknown]

NARRATIVE: CASE EVENT DATE: 2017
